FAERS Safety Report 9359722 (Version 1)
Quarter: 2013Q2

REPORT INFORMATION
  Report Type: Report from Study
  Country: BE (occurrence: BE)
  Receive Date: 20130621
  Receipt Date: 20130621
  Transmission Date: 20140414
  Serious: Yes (Other)
  Sender: FDA-Public Use
  Company Number: BE-ROCHE-1239392

PATIENT
  Sex: 0

DRUGS (1)
  1. PERJETA [Suspect]
     Indication: PRODUCT USED FOR UNKNOWN INDICATION
     Route: 042
     Dates: start: 20130201, end: 20130517

REACTIONS (1)
  - Disease progression [Not Recovered/Not Resolved]
